FAERS Safety Report 7482502-7 (Version None)
Quarter: 2011Q2

REPORT INFORMATION
  Report Type: 
  Country: None (occurrence: None)
  Receive Date: 20110516
  Receipt Date: 20110411
  Transmission Date: 20111010
  Serious: Yes (Hospitalization, Other)
  Sender: FDA-Public Use
  Company Number: US-BAYER-2011-005920

PATIENT
  Age: 37 Year
  Sex: Female
  Weight: 113.38 kg

DRUGS (5)
  1. AMLODIPINE BESYLATE [Concomitant]
     Indication: HYPERTENSION
     Dosage: UNK
     Dates: start: 20000101
  2. RANITIDINE [Concomitant]
     Dosage: 150 MG, UNK
     Dates: start: 20090806
  3. IBUPROFEN [Concomitant]
  4. NORVASC [Concomitant]
  5. YAZ [Suspect]
     Indication: CONTRACEPTION
     Dosage: UNK
     Dates: start: 20061201, end: 20080901

REACTIONS (5)
  - PAIN [None]
  - PANCREATITIS [None]
  - INJURY [None]
  - CHOLELITHIASIS [None]
  - CHOLECYSTITIS CHRONIC [None]
